FAERS Safety Report 21421255 (Version 3)
Quarter: 2022Q4

REPORT INFORMATION
  Report Type: Report from Study
  Country: JP (occurrence: JP)
  Receive Date: 20221007
  Receipt Date: 20221114
  Transmission Date: 20230112
  Serious: Yes (Death, Other)
  Sender: FDA-Public Use
  Company Number: JP-GSKJP-JP2022JPN141555AA

PATIENT

DRUGS (12)
  1. SOTROVIMAB [Suspect]
     Active Substance: SOTROVIMAB
     Dosage: 500 MG/100ML/30MIN, SINGLE DOSE
     Dates: start: 20220120, end: 20220120
  2. VEKLURY [Concomitant]
     Active Substance: REMDESIVIR
     Dosage: UNK
     Dates: start: 20220120
  3. ASPIRIN [Concomitant]
     Active Substance: ASPIRIN
     Dosage: 100 MG, QD, AFTER BREAKFAST
  4. LANSOPRAZOLE [Concomitant]
     Active Substance: LANSOPRAZOLE
     Dosage: 15 MG, QD, AFTER BREAKFAST
  5. OLMESARTAN OD TABLETS [Concomitant]
     Dosage: 20 MG, QD, AFTER DINNER
  6. BETANIS TABLETS [Concomitant]
     Dosage: 50 MG, QD, DINNER
  7. EPINASTINE HYDROCHLORIDE TABLET [Concomitant]
     Dosage: 10 MG, QD, AFTER DINNER
  8. MEMANTINE HYDROCHLORIDE OD [Concomitant]
     Dosage: 10 MG, QD, AFTER DINNER
  9. SENNOSIDES [Concomitant]
     Active Substance: SENNOSIDES
     Dosage: 24 MG, QD, BEFORE SLEEP
  10. CHLORPROMAZINE [Concomitant]
     Active Substance: CHLORPROMAZINE
     Dosage: 125 MG, TID, AFTER EACH MEAL
  11. EQUA TABLETS [Concomitant]
     Dosage: 50 MG, BID, AFTER BREAKFAST AND DINNER
  12. AMEZINIUM METILSULFATE [Concomitant]
     Active Substance: AMEZINIUM METILSULFATE
     Dosage: 10 MG, TWICE AS PHYS. TOLD, ON HAEMODIALYSIS DAY
     Route: 048

REACTIONS (7)
  - COVID-19 [Fatal]
  - Respiratory arrest [Fatal]
  - Cardiac arrest [Fatal]
  - Pupillary reflex impaired [Fatal]
  - Pneumonia bacterial [Unknown]
  - Respiratory disorder [Unknown]
  - Drug ineffective [Unknown]

NARRATIVE: CASE EVENT DATE: 20220125
